FAERS Safety Report 9685439 (Version 1)
Quarter: 2013Q4

REPORT INFORMATION
  Report Type: Spontaneous
  Country: US (occurrence: None)
  Receive Date: 20131112
  Receipt Date: 20131112
  Transmission Date: 20140711
  Serious: Yes (Hospitalization)
  Sender: FDA-Public Use
  Company Number: None

PATIENT
  Age: 3 Year
  Sex: Female
  Weight: 15.9 kg

DRUGS (6)
  1. CYCLOPHOSPHAMIDE [Suspect]
     Dates: end: 20130903
  2. CYTARABINE [Suspect]
     Dates: end: 20130913
  3. METHOTREXATE [Suspect]
     Dates: end: 20130910
  4. ONCASPAR [Suspect]
     Dates: end: 20130917
  5. THIOGUANINE [Suspect]
     Dates: end: 20130911
  6. VINCRISTINE [Suspect]
     Dates: end: 20130924

REACTIONS (2)
  - Pyrexia [None]
  - Neutropenia [None]
